FAERS Safety Report 5622160-7 (Version None)
Quarter: 2008Q1

REPORT INFORMATION
  Report Type: 
  Country: None (occurrence: None)
  Receive Date: 20080211
  Receipt Date: 20080204
  Transmission Date: 20080703
  Serious: Yes (Disabling, Other)
  Sender: FDA-Public Use
  Company Number: GB-RANBAXY-2008RR-12841

PATIENT

DRUGS (1)
  1. SIMVASTATIN 20MG TABLETS [Suspect]
     Indication: HYPERLIPIDAEMIA
     Dosage: 20 MG, UNK
     Route: 048
     Dates: start: 20070815, end: 20071220

REACTIONS (2)
  - APHONIA [None]
  - MYALGIA [None]
